FAERS Safety Report 8903588 (Version 3)
Quarter: 2013Q4

REPORT INFORMATION
  Report Type: Spontaneous
  Country: US (occurrence: US)
  Receive Date: 20121113
  Receipt Date: 20131022
  Transmission Date: 20140711
  Serious: Yes (Hospitalization)
  Sender: FDA-Public Use
  Company Number: US-UCBSA-070500

PATIENT
  Age: 68 Year
  Sex: Female

DRUGS (2)
  1. CIMZIA [Suspect]
     Indication: CROHN^S DISEASE
     Route: 058
     Dates: start: 20100623
  2. CIMZIA [Suspect]
     Indication: CROHN^S DISEASE
     Route: 058
     Dates: start: 20130815

REACTIONS (5)
  - Vertigo [Not Recovered/Not Resolved]
  - Nausea [Not Recovered/Not Resolved]
  - Vomiting [Not Recovered/Not Resolved]
  - Paraesthesia [Not Recovered/Not Resolved]
  - Incorrect dose administered [Unknown]
